FAERS Safety Report 14246070 (Version 1)
Quarter: 2017Q4

REPORT INFORMATION
  Report Type: Spontaneous
  Country: US (occurrence: US)
  Receive Date: 20171204
  Receipt Date: 20171204
  Transmission Date: 20180321
  Serious: Yes (Hospitalization, Other)
  Sender: FDA-Public Use
  Company Number: US-WEST-WARD PHARMACEUTICALS CORP.-US-H14001-17-04500

PATIENT
  Age: 25 Year
  Sex: Female

DRUGS (3)
  1. BUPIVACAINE. [Concomitant]
     Active Substance: BUPIVACAINE
     Indication: FEMALE STERILISATION
     Route: 037
  2. BUPRENORPHINE. [Suspect]
     Active Substance: BUPRENORPHINE
     Indication: PRODUCT USED FOR UNKNOWN INDICATION
     Route: 065
  3. SUFENTANIL [Concomitant]
     Active Substance: SUFENTANIL
     Indication: FEMALE STERILISATION
     Route: 037

REACTIONS (4)
  - Procedural pain [Recovered/Resolved]
  - Maternal exposure during pregnancy [Recovered/Resolved]
  - Drug abuse [Unknown]
  - Hyperaesthesia [Recovered/Resolved]
